FAERS Safety Report 19242445 (Version 12)
Quarter: 2023Q2

REPORT INFORMATION
  Report Type: Report from Study
  Country: SG (occurrence: SG)
  Receive Date: 20210510
  Receipt Date: 20230620
  Transmission Date: 20230721
  Serious: Yes (Hospitalization, Other)
  Sender: FDA-Public Use
  Company Number: SG-BRISTOL-MYERS SQUIBB COMPANY-BMS-2021-039895

PATIENT
  Sex: Male
  Weight: 63.5 kg

DRUGS (7)
  1. PLACEBO [Suspect]
     Active Substance: UNSPECIFIED INGREDIENT
     Indication: Renal cell carcinoma
     Dosage: ON 08-APR-2021, MOST RECENT DOSE RECEIVED?ON 14 APR 2021,BLINDED STUDY TREATMENT WAS INTERRUPTED IN
     Route: 048
     Dates: start: 20210305, end: 20210511
  2. IPILIMUMAB [Suspect]
     Active Substance: IPILIMUMAB
     Indication: Renal cell carcinoma
     Dosage: MOST RECENT DOSE RECEIVED ON 26-MAR-2021, PRIOR TO THE EVENT.?15-APR-2021, INTERRUPTED?11-MAY-2021:W
     Route: 042
     Dates: start: 20210305, end: 20210511
  3. ACETAMINOPHEN [Concomitant]
     Active Substance: ACETAMINOPHEN
     Indication: Product used for unknown indication
     Dosage: UNK
  4. FEXOFENADINE [Concomitant]
     Active Substance: FEXOFENADINE HYDROCHLORIDE
     Indication: Product used for unknown indication
     Dosage: UNK
  5. CHLORPHENIRAMINE MALEATE [Concomitant]
     Active Substance: CHLORPHENIRAMINE MALEATE
     Indication: Product used for unknown indication
     Dosage: UNK
  6. BETAMETHASONE;CLIOQUINOL [Concomitant]
     Indication: Product used for unknown indication
     Dosage: UNK
  7. MOMETASONE FUROATE [Concomitant]
     Active Substance: MOMETASONE FUROATE
     Indication: Product used for unknown indication
     Dosage: UNK

REACTIONS (4)
  - Haemophagocytic lymphohistiocytosis [Not Recovered/Not Resolved]
  - Myositis [Recovered/Resolved]
  - Hypertransaminasaemia [Recovered/Resolved]
  - Bacteraemia [Recovered/Resolved]

NARRATIVE: CASE EVENT DATE: 20210409
